FAERS Safety Report 6304090-0 (Version None)
Quarter: 2009Q3

REPORT INFORMATION
  Report Type: 
  Country: None (occurrence: None)
  Receive Date: 20090810
  Receipt Date: 20090810
  Transmission Date: 20100115
  Serious: Yes (Disabling)
  Sender: FDA-Public Use
  Company Number: None

PATIENT
  Age: 11 Year
  Sex: Female
  Weight: 59.1 kg

DRUGS (1)
  1. MINOCIN [Suspect]
     Indication: ACNE
     Dosage: PO (047) APPROXIMATELY FROM 1990-1992
     Route: 048
     Dates: start: 19900101, end: 19920101

REACTIONS (2)
  - TOOTH DISCOLOURATION [None]
  - TREATMENT NONCOMPLIANCE [None]
